FAERS Safety Report 19313510 (Version 1)
Quarter: 2021Q2

REPORT INFORMATION
  Report Type: Spontaneous
  Country: DE (occurrence: DE)
  Receive Date: 20210527
  Receipt Date: 20210527
  Transmission Date: 20210717
  Serious: Yes (Other)
  Sender: FDA-Public Use
  Company Number: DE-UCBSA-2021024261

PATIENT
  Age: 11 Year
  Sex: Female

DRUGS (4)
  1. VALPROAT [Concomitant]
     Active Substance: VALPROATE SODIUM
     Indication: PRODUCT USED FOR UNKNOWN INDICATION
     Dosage: UNK
     Dates: end: 20210404
  2. VIMPAT [Suspect]
     Active Substance: LACOSAMIDE
     Indication: PRODUCT USED FOR UNKNOWN INDICATION
     Dosage: 200 MG DAILY
     Dates: start: 20210322, end: 2021
  3. VIMPAT [Suspect]
     Active Substance: LACOSAMIDE
     Dosage: 350 MG A DAY DISTRIBUTED OVER THREE DOSES
     Dates: start: 2021
  4. INOVELON [Concomitant]
     Active Substance: RUFINAMIDE
     Indication: PRODUCT USED FOR UNKNOWN INDICATION
     Dosage: UNK

REACTIONS (4)
  - Nausea [Unknown]
  - Chills [Unknown]
  - Off label use [Unknown]
  - Tachycardia [Unknown]
